FAERS Safety Report 6074311-0 (Version None)
Quarter: 2009Q1

REPORT INFORMATION
  Report Type: 
  Country: None (occurrence: None)
  Receive Date: 20090211
  Receipt Date: 20090205
  Transmission Date: 20090719
  Serious: Yes (Hospitalization, Other)
  Sender: FDA-Public Use
  Company Number: JP-ROXANE LABORATORIES, INC.-2009-RO-00120RO

PATIENT
  Age: 5 Year
  Sex: Female

DRUGS (5)
  1. CYCLOPHOSPHAMIDE [Suspect]
     Indication: NEUROBLASTOMA
  2. PIRARUBICIN [Suspect]
     Indication: NEUROBLASTOMA
  3. CARBOPLATIN [Suspect]
     Indication: NEUROBLASTOMA
  4. CHEMOTHERAPY [Concomitant]
     Indication: ACUTE MYELOID LEUKAEMIA
  5. CORD BLOOD TRANSPLANTATION [Concomitant]
     Indication: ACUTE MYELOID LEUKAEMIA

REACTIONS (2)
  - ACUTE MYELOID LEUKAEMIA [None]
  - GENE MUTATION [None]
